FAERS Safety Report 4570695-0 (Version None)
Quarter: 2005Q1

REPORT INFORMATION
  Report Type: 
  Country: None (occurrence: None)
  Receive Date: 20050131
  Receipt Date: 20041020
  Transmission Date: 20050727
  Serious: Yes (Hospitalization)
  Sender: FDA-Public Use
  Company Number: 206475

PATIENT
  Age: 64 Year
  Sex: Female

DRUGS (10)
  1. AVONEX [Suspect]
     Indication: MULTIPLE SCLEROSIS
     Dosage: 30 UG; QW; IM
     Route: 030
     Dates: start: 19980601
  2. OXYCONTIN [Concomitant]
  3. LEVOXYL [Concomitant]
  4. CELEBREX [Concomitant]
  5. PAXIL [Concomitant]
  6. COLACE [Concomitant]
  7. FEMARA [Concomitant]
  8. DULCOLAX [Concomitant]
  9. VITAMIN E [Concomitant]
  10. KEPPRA [Concomitant]

REACTIONS (3)
  - FALL [None]
  - PAIN IN EXTREMITY [None]
  - UPPER LIMB FRACTURE [None]
